FAERS Safety Report 12890685 (Version 1)
Quarter: 2016Q4

REPORT INFORMATION
  Report Type: Spontaneous
  Country: US (occurrence: US)
  Receive Date: 20161027
  Receipt Date: 20161027
  Transmission Date: 20170207
  Serious: No
  Sender: FDA-Public Use
  Company Number: US-JAZZ-2016-US-015857

PATIENT
  Sex: Female

DRUGS (8)
  1. TYLENOL [Concomitant]
     Active Substance: ACETAMINOPHEN
  2. LOSARTAN AND HYDROCHLOROTHIAZIDE [Concomitant]
     Active Substance: HYDROCHLOROTHIAZIDE\LOSARTAN POTASSIUM
  3. XYREM [Suspect]
     Active Substance: SODIUM OXYBATE
     Indication: SPASMODIC DYSPHONIA
     Dosage: 1 G, BID
     Route: 048
     Dates: start: 201607
  4. RANITIDINE. [Concomitant]
     Active Substance: RANITIDINE
  5. ASPIRIN. [Concomitant]
     Active Substance: ASPIRIN
  6. CENTRUM SILVER [Concomitant]
     Active Substance: MINERALS\VITAMINS
  7. NEXIUM [Concomitant]
     Active Substance: ESOMEPRAZOLE MAGNESIUM
  8. VITAMIN D3 [Concomitant]
     Active Substance: CHOLECALCIFEROL

REACTIONS (2)
  - Wrong technique in product usage process [Unknown]
  - Urinary tract infection [Unknown]
